FAERS Safety Report 16731945 (Version 1)
Quarter: 2019Q3

REPORT INFORMATION
  Report Type: Spontaneous
  Country: US (occurrence: US)
  Receive Date: 20190822
  Receipt Date: 20190822
  Transmission Date: 20191005
  Serious: Yes (Hospitalization)
  Sender: FDA-Public Use
  Company Number: US-BRISTOL-MYERS SQUIBB COMPANY-BMS-2019-082679

PATIENT
  Sex: Female

DRUGS (2)
  1. JTX 2011 [Suspect]
     Active Substance: VOPRATELIMAB
     Indication: TRIPLE NEGATIVE BREAST CANCER
     Dosage: 0.3 MILLIGRAM/KILOGRAM
     Route: 065
  2. NIVOLUMAB [Suspect]
     Active Substance: NIVOLUMAB
     Indication: TRIPLE NEGATIVE BREAST CANCER
     Dosage: 240 MILLIGRAM
     Route: 042

REACTIONS (3)
  - Intentional product use issue [Unknown]
  - Constipation [Recovered/Resolved]
  - Diarrhoea [Recovered/Resolved]
